FAERS Safety Report 6388018-3 (Version None)
Quarter: 2009Q4

REPORT INFORMATION
  Report Type: 
  Country: None (occurrence: None)
  Receive Date: 20091005
  Receipt Date: 20090922
  Transmission Date: 20100525
  Serious: Yes (Other)
  Sender: FDA-Public Use
  Company Number: US-PFIZER INC-2009276223

PATIENT
  Sex: Male
  Weight: 83.447 kg

DRUGS (3)
  1. CHANTIX [Suspect]
     Indication: TOBACCO USER
     Dosage: 0.5 MG, 1X/DAY
     Route: 048
     Dates: end: 20081101
  2. ALLEGRA [Suspect]
  3. RANITIDINE [Suspect]

REACTIONS (8)
  - ABDOMINAL PAIN UPPER [None]
  - ANTIBODY TEST POSITIVE [None]
  - DRUG INEFFECTIVE [None]
  - DYSPHAGIA [None]
  - LIP SWELLING [None]
  - PRURITUS [None]
  - SWELLING FACE [None]
  - URTICARIA [None]
